FAERS Safety Report 9012457 (Version 2)
Quarter: 2013Q1

REPORT INFORMATION
  Report Type: Spontaneous
  Country: US (occurrence: US)
  Receive Date: 20130114
  Receipt Date: 20130228
  Transmission Date: 20140127
  Serious: No
  Sender: FDA-Public Use
  Company Number: US-TEVA-379551USA

PATIENT
  Sex: Female

DRUGS (2)
  1. QVAR [Suspect]
     Indication: ASTHMA
     Dosage: 160 MILLIGRAM DAILY;
     Dates: start: 201209
  2. VITAMINS [Concomitant]

REACTIONS (1)
  - Drug effect decreased [Unknown]
